FAERS Safety Report 9362303 (Version 1)
Quarter: 2013Q2

REPORT INFORMATION
  Report Type: Spontaneous
  Country: US (occurrence: US)
  Receive Date: 20130622
  Receipt Date: 20130622
  Transmission Date: 20140414
  Serious: Yes (Other)
  Sender: FDA-Public Use
  Company Number: US-US-EMD SERONO, INC.-7037086

PATIENT
  Age: 40 Year
  Sex: Female

DRUGS (4)
  1. REBIF [Suspect]
     Indication: MULTIPLE SCLEROSIS
     Route: 058
     Dates: start: 20090602, end: 20110920
  2. AMPYRA [Suspect]
     Indication: PRODUCT USED FOR UNKNOWN INDICATION
  3. BACLOFEN [Concomitant]
     Indication: MUSCLE SPASTICITY
     Dates: start: 20100927
  4. LEXAPRO [Concomitant]
     Indication: DEPRESSION
     Route: 048
     Dates: start: 20110103

REACTIONS (2)
  - Convulsion [Recovered/Resolved]
  - Hepatic enzyme increased [Unknown]
